FAERS Safety Report 6876643-2 (Version None)
Quarter: 2010Q3

REPORT INFORMATION
  Report Type: 
  Country: None (occurrence: None)
  Receive Date: 20100727
  Receipt Date: 20100721
  Transmission Date: 20110219
  Serious: Yes (Death, Life-Threatening, Hospitalization)
  Sender: FDA-Public Use
  Company Number: CA-ROCHE-655438

PATIENT
  Sex: Female
  Weight: 63.4 kg

DRUGS (21)
  1. BEVACIZUMAB [Suspect]
     Indication: NON-SMALL CELL LUNG CANCER
     Dosage: DOSAGE FORM REPORTED AS LIQUID, THERAPY TEMPORARILY INTERRUPTED
     Route: 042
     Dates: start: 20090309, end: 20090728
  2. BEVACIZUMAB [Suspect]
     Route: 042
     Dates: end: 20090905
  3. CISPLATIN [Suspect]
     Indication: NON-SMALL CELL LUNG CANCER
     Dosage: LAST DOSE PRIOR TO SAE: 02 JUNE 2009. DOSAGE FORM: LIQUID.
     Route: 042
     Dates: start: 20090309
  4. VINORELBINE [Suspect]
     Indication: NON-SMALL CELL LUNG CANCER
     Dosage: LAST DOSE PRIOR TO SAE: 09 JUNE 2009.  DOSAGE FORM: LIQUID.
     Route: 042
     Dates: start: 20090309
  5. SENOKOT [Concomitant]
     Dosage: TDD: 1-2 TABLETS.  DRUG NAME: SENEKOT.
     Dates: start: 20090309, end: 20090905
  6. MAGIC MOUTHWASH NOS [Concomitant]
     Dates: start: 20090616, end: 20090911
  7. RABEPRAZOLE SODIUM [Concomitant]
     Dates: start: 20090612, end: 20090905
  8. SULCRATE [Concomitant]
     Dates: start: 20090724, end: 20090905
  9. SULCRATE [Concomitant]
     Dates: start: 20090909, end: 20090911
  10. MS CONTIN [Concomitant]
     Dates: start: 20090817, end: 20090906
  11. LANSOPRAZOLE [Concomitant]
     Dosage: DRUG NAME: LANSOPRAZOLE RAPID ACTING
     Dates: start: 20090906, end: 20090906
  12. STATEX [Concomitant]
     Dates: start: 20090817, end: 20090906
  13. STATEX [Concomitant]
     Dates: start: 20090909, end: 20090911
  14. HYDROMORPHONE [Concomitant]
     Dates: start: 20090908, end: 20090911
  15. HYDROMORPHONE [Concomitant]
     Dosage: FREQUENCY: PRN
     Dates: end: 20090915
  16. FENTANYL-75 [Concomitant]
     Dosage: TDD: 50 MCG/HR
     Dates: start: 20090906
  17. FENTANYL-75 [Concomitant]
     Dosage: TDD: 12 MCG/HR
     Dates: start: 20090909, end: 20090913
  18. HEPARIN [Concomitant]
     Dates: start: 20090910, end: 20090915
  19. MOXIFLOXACIN [Concomitant]
     Dates: start: 20090906, end: 20090915
  20. PANTOPRAZOLE [Concomitant]
     Dates: start: 20090911, end: 20090915
  21. METRONIDAZOLE [Concomitant]
     Dates: start: 20090912, end: 20090915

REACTIONS (4)
  - OESOPHAGEAL FISTULA [None]
  - OESOPHAGITIS [None]
  - PNEUMONIA ASPIRATION [None]
  - PULMONARY HAEMORRHAGE [None]
